FAERS Safety Report 17739843 (Version 2)
Quarter: 2020Q2

REPORT INFORMATION
  Report Type: Spontaneous
  Country: JP (occurrence: JP)
  Receive Date: 20200504
  Receipt Date: 20200625
  Transmission Date: 20200714
  Serious: Yes (Hospitalization)
  Sender: FDA-Public Use
  Company Number: JP-SA-2020SA112387

PATIENT

DRUGS (1)
  1. DUPIXENT [Suspect]
     Active Substance: DUPILUMAB
     Indication: ASTHMA
     Dosage: UNK
     Route: 058

REACTIONS (20)
  - Generalised oedema [Unknown]
  - Oxygen saturation decreased [Unknown]
  - Oedema peripheral [Unknown]
  - Malaise [Unknown]
  - Chest discomfort [Unknown]
  - Palpitations [Unknown]
  - Headache [Unknown]
  - Oxygen saturation decreased [Recovered/Resolved]
  - Dyspnoea [Not Recovered/Not Resolved]
  - Insomnia [Unknown]
  - Middle insomnia [Unknown]
  - Alopecia [Unknown]
  - Haemoptysis [Unknown]
  - Aptyalism [Unknown]
  - Dyspnoea [Unknown]
  - Face oedema [Unknown]
  - Oxygen saturation decreased [Unknown]
  - Thirst [Unknown]
  - Visual acuity reduced [Unknown]
  - Fatigue [Unknown]

NARRATIVE: CASE EVENT DATE: 2020
